FAERS Safety Report 7939934-X (Version None)
Quarter: 2011Q4

REPORT INFORMATION
  Report Type: 
  Country: None (occurrence: None)
  Receive Date: 20111125
  Receipt Date: 20111114
  Transmission Date: 20120403
  Serious: Yes (Other)
  Sender: FDA-Public Use
  Company Number: PHHY2011JP099947

PATIENT
  Age: 55 Year
  Sex: Male

DRUGS (11)
  1. DOXORUBICIN HCL [Suspect]
  2. MELPHALAN HYDROCHLORIDE [Concomitant]
  3. IMATINIB MESYLATE [Suspect]
     Dosage: 400 MG, DAILY
  4. ELDISINE [Suspect]
  5. CYTARABINE [Concomitant]
  6. FLUDARABINE PHOSPHATE [Concomitant]
  7. METHYLPREDNISOLONE [Concomitant]
  8. PREDNISOLONE [Suspect]
  9. IMATINIB MESYLATE [Suspect]
     Indication: ACUTE LYMPHOCYTIC LEUKAEMIA
     Dosage: 600 MG, DAILY
  10. IMATINIB MESYLATE [Suspect]
     Dosage: 800 MG, DAILY
  11. CYCLOPHOSPHAMIDE [Suspect]

REACTIONS (7)
  - MUCOSAL INFLAMMATION [None]
  - ACUTE LYMPHOCYTIC LEUKAEMIA RECURRENT [None]
  - GRAFT VERSUS HOST DISEASE [None]
  - GENE MUTATION IDENTIFICATION TEST POSITIVE [None]
  - BLAST CELL CRISIS [None]
  - CHIMERISM [None]
  - SKIN LESION [None]
